FAERS Safety Report 4476570-4 (Version None)
Quarter: 2004Q4

REPORT INFORMATION
  Report Type: 
  Country: None (occurrence: None)
  Receive Date: 20041014
  Receipt Date: 20041001
  Transmission Date: 20050328
  Serious: Yes (Hospitalization)
  Sender: FDA-Public Use
  Company Number: 2004053427

PATIENT
  Age: 82 Year
  Sex: Female
  Weight: 80.7403 kg

DRUGS (8)
  1. NEOSPORIN [Suspect]
     Indication: HEAT RASH
     Dosage: FINGER TIP AS NEEDED, TOPICAL
     Route: 061
     Dates: start: 20040501
  2. NEOSPORIN [Suspect]
  3. AMINO ACIDS NOS (AMINO ACIDS NOS) [Concomitant]
  4. HYZAAR [Concomitant]
  5. LEVOTHYROXINE SODIUM [Concomitant]
  6. ATENOLOL [Concomitant]
  7. VALSARTAN (VALSARTAN) [Concomitant]
  8. CLOTRIMAZOLE (CLOTRIMAZOLE) [Concomitant]

REACTIONS (14)
  - APHASIA [None]
  - BRAIN OPERATION [None]
  - BUNION [None]
  - CEREBRAL HAEMORRHAGE [None]
  - DRUG INEFFECTIVE [None]
  - GAIT DISTURBANCE [None]
  - HEAD INJURY [None]
  - LOSS OF CONSCIOUSNESS [None]
  - PAIN [None]
  - PAIN OF SKIN [None]
  - POST PROCEDURAL COMPLICATION [None]
  - RASH MACULAR [None]
  - TOOTHACHE [None]
  - WEIGHT DECREASED [None]
